FAERS Safety Report 24795911 (Version 3)
Quarter: 2025Q1

REPORT INFORMATION
  Report Type: Report from Study
  Country: EG (occurrence: EG)
  Receive Date: 20250101
  Receipt Date: 20250225
  Transmission Date: 20250408
  Serious: Yes (Disabling)
  Sender: ROCHE
  Company Number: EG-ROCHE-10000108583

PATIENT
  Age: 32 Year
  Sex: Male

DRUGS (1)
  1. OCREVUS [Suspect]
     Active Substance: OCRELIZUMAB
     Indication: Multiple sclerosis
     Route: 042
     Dates: start: 20240514

REACTIONS (9)
  - Urinary incontinence [Not Recovered/Not Resolved]
  - Nasopharyngitis [Recovered/Resolved]
  - Weight decreased [Not Recovered/Not Resolved]
  - Asthenia [Not Recovered/Not Resolved]
  - Memory impairment [Not Recovered/Not Resolved]
  - Gait disturbance [Not Recovered/Not Resolved]
  - Vision blurred [Not Recovered/Not Resolved]
  - Visual impairment [Not Recovered/Not Resolved]
  - Anal incontinence [Not Recovered/Not Resolved]
